FAERS Safety Report 9217998 (Version 1)
Quarter: 2013Q2

REPORT INFORMATION
  Report Type: Report from Study
  Country: US (occurrence: US)
  Receive Date: 20130408
  Receipt Date: 20130408
  Transmission Date: 20140414
  Serious: Yes (Life-Threatening, Hospitalization)
  Sender: FDA-Public Use
  Company Number: US-ROCHE-796837

PATIENT
  Age: 73 Year
  Sex: Male
  Weight: 96.1 kg

DRUGS (3)
  1. VISMODEGIB [Suspect]
     Indication: SMALL CELL LUNG CANCER
     Dosage: TOTAL DOSE: 2400 MG, LAST DOSE: 27 JULY 2011
     Route: 048
  2. CISPLATIN [Suspect]
     Indication: SMALL CELL LUNG CANCER
     Dosage: OVER 2 HOURS ON DAY 1, TOTAL DOSE:204 MG LAST DOSE: 12 JULY 2011
     Route: 042
  3. ETOPOSIDE [Suspect]
     Indication: SMALL CELL LUNG CANCER
     Dosage: IV OVER 2 HRS ON DAY 1-3, LAST DOSE PRIOR TO SAE 14 JULY 2011, TOTAL DOSE:612 MG
     Route: 042

REACTIONS (5)
  - Febrile neutropenia [Not Recovered/Not Resolved]
  - White blood cell count decreased [Not Recovered/Not Resolved]
  - Hypotension [Not Recovered/Not Resolved]
  - Hypercalcaemia [Not Recovered/Not Resolved]
  - Blood alkaline phosphatase increased [Not Recovered/Not Resolved]
